FAERS Safety Report 4506478-7 (Version None)
Quarter: 2004Q4

REPORT INFORMATION
  Report Type: 
  Country: None (occurrence: None)
  Receive Date: 20041122
  Receipt Date: 20041117
  Transmission Date: 20050328
  Serious: Yes (Hospitalization)
  Sender: FDA-Public Use
  Company Number: GB-BRISTOL-MYERS SQUIBB COMPANY-12769147

PATIENT
  Age: 68 Year
  Sex: Female
  Weight: 56 kg

DRUGS (4)
  1. CYCLOPHOSPHAMIDE [Suspect]
     Indication: BREAST CANCER
     Dates: start: 20040331, end: 20040331
  2. PACLITAXEL [Suspect]
     Indication: BREAST CANCER
     Dates: start: 20040423, end: 20040423
  3. GEMCITABINE [Suspect]
     Indication: BREAST CANCER
     Dates: start: 20040430, end: 20040430
  4. EPIRUBICIN [Suspect]
     Indication: BREAST CANCER
     Dates: start: 20040331, end: 20040331

REACTIONS (1)
  - LEUKOCYTOCLASTIC VASCULITIS [None]
